FAERS Safety Report 7770512-1 (Version None)
Quarter: 2011Q3

REPORT INFORMATION
  Report Type: 
  Country: None (occurrence: None)
  Receive Date: 20110922
  Receipt Date: 20110714
  Transmission Date: 20111222
  Serious: No
  Sender: FDA-Public Use
  Company Number: US-ASTRAZENECA-2011SE17842

PATIENT
  Age: 61 Year
  Sex: Male

DRUGS (2)
  1. SEROQUEL [Suspect]
     Indication: SLEEP DISORDER THERAPY
     Route: 048
  2. SEROQUEL [Suspect]
     Route: 048

REACTIONS (8)
  - PNEUMONIA [None]
  - SOMNOLENCE [None]
  - DRUG DOSE OMISSION [None]
  - OFF LABEL USE [None]
  - WRONG TECHNIQUE IN DRUG USAGE PROCESS [None]
  - INSOMNIA [None]
  - MALAISE [None]
  - THERAPEUTIC RESPONSE UNEXPECTED [None]
